FAERS Safety Report 7534075-8 (Version None)
Quarter: 2011Q2

REPORT INFORMATION
  Report Type: 
  Country: None (occurrence: None)
  Receive Date: 20110608
  Receipt Date: 20060926
  Transmission Date: 20111010
  Serious: Yes (Other)
  Sender: FDA-Public Use
  Company Number: PHMT2006CA01874

PATIENT
  Sex: Male

DRUGS (3)
  1. SANDOSTATIN LAR [Suspect]
     Indication: ACROMEGALY
     Dosage: 20 MG, QMO
     Dates: start: 20040105
  2. ZOLOFT [Concomitant]
  3. ASPIRIN [Concomitant]

REACTIONS (2)
  - TOOTH INFECTION [None]
  - NASOPHARYNGITIS [None]
